FAERS Safety Report 13794050 (Version 1)
Quarter: 2017Q3

REPORT INFORMATION
  Report Type: Spontaneous
  Country: US (occurrence: US)
  Receive Date: 20170726
  Receipt Date: 20170726
  Transmission Date: 20171127
  Serious: Yes (Hospitalization)
  Sender: FDA-Public Use
  Company Number: None

PATIENT
  Age: 71 Year
  Sex: Male
  Weight: 116.57 kg

DRUGS (1)
  1. CLINDAMYCIN. [Suspect]
     Active Substance: CLINDAMYCIN
     Indication: CELLULITIS
     Route: 048
     Dates: start: 20170713, end: 20170715

REACTIONS (6)
  - Oliguria [None]
  - Acute generalised exanthematous pustulosis [None]
  - Diarrhoea [None]
  - Hypotension [None]
  - Acute kidney injury [None]
  - Pyrexia [None]

NARRATIVE: CASE EVENT DATE: 20170715
